FAERS Safety Report 18079495 (Version 1)
Quarter: 2020Q3

REPORT INFORMATION
  Report Type: Spontaneous
  Country: US (occurrence: US)
  Receive Date: 20200727
  Receipt Date: 20200727
  Transmission Date: 20201103
  Serious: Yes (Other)
  Sender: FDA-Public Use
  Company Number: None

PATIENT
  Age: 55 Year
  Sex: Female

DRUGS (23)
  1. ASA EC [Concomitant]
     Active Substance: ASPIRIN
  2. AZELASTINE SPRAY [Concomitant]
  3. REMODULIN [Suspect]
     Active Substance: TREPROSTINIL
     Indication: PULMONARY ARTERIAL HYPERTENSION
  4. PROAIR HFA [Concomitant]
     Active Substance: ALBUTEROL SULFATE
  5. COLACE [Concomitant]
     Active Substance: DOCUSATE SODIUM
  6. BREO ELLIPTA [Concomitant]
     Active Substance: FLUTICASONE FUROATE\VILANTEROL TRIFENATATE
  7. SCOPOLAMINE [Concomitant]
     Active Substance: SCOPOLAMINE
  8. MTX [Concomitant]
     Active Substance: METHOTREXATE SODIUM
  9. MORPHINE [Concomitant]
     Active Substance: MORPHINE
  10. LIDOCAINE. [Concomitant]
     Active Substance: LIDOCAINE
  11. HYDROCODONE BITARTRATE AND ACETAMINOPHEN [Concomitant]
     Active Substance: ACETAMINOPHEN\HYDROCODONE BITARTRATE
  12. ZANAFLEX [Concomitant]
     Active Substance: TIZANIDINE HYDROCHLORIDE
  13. ALYQ [Concomitant]
     Active Substance: TADALAFIL
  14. FLONASE [Concomitant]
     Active Substance: FLUTICASONE PROPIONATE
  15. AMBRISENTAN [Suspect]
     Active Substance: AMBRISENTAN
     Indication: PULMONARY ARTERIAL HYPERTENSION
     Route: 048
  16. DOXYCYCLINE HYCLATE. [Concomitant]
     Active Substance: DOXYCYCLINE HYCLATE
  17. ACTEMRA [Concomitant]
     Active Substance: TOCILIZUMAB
  18. REQUIP [Concomitant]
     Active Substance: ROPINIROLE HYDROCHLORIDE
  19. ZOFRAN [Concomitant]
     Active Substance: ONDANSETRON HYDROCHLORIDE
  20. BIOTIN [Concomitant]
     Active Substance: BIOTIN
  21. HYDROXYZINE HCL [Concomitant]
     Active Substance: HYDROXYZINE HYDROCHLORIDE
  22. PHENERGAN [Concomitant]
     Active Substance: PROMETHAZINE HYDROCHLORIDE
  23. ALBUTEROL SOLN [Concomitant]

REACTIONS (5)
  - Weight decreased [None]
  - Sinus congestion [None]
  - Dry mouth [None]
  - Hypotension [None]
  - Cough [None]

NARRATIVE: CASE EVENT DATE: 20200727
